FAERS Safety Report 23600940 (Version 1)
Quarter: 2024Q1

REPORT INFORMATION
  Report Type: Spontaneous
  Country: US (occurrence: US)
  Receive Date: 20240306
  Receipt Date: 20240306
  Transmission Date: 20240409
  Serious: No
  Sender: FDA-Public Use
  Company Number: US-002147023-NVSC2024US044484

PATIENT
  Sex: Male

DRUGS (1)
  1. PLUVICTO [Suspect]
     Active Substance: LUTETIUM LU-177 VIPIVOTIDE TETRAXETAN
     Indication: Prostate cancer
     Dosage: 7400 MBQ, OTHER (EVERY 6 WEEKS))
     Route: 042
     Dates: start: 20231128

REACTIONS (11)
  - Pain [Unknown]
  - Dry skin [Unknown]
  - Full blood count abnormal [Unknown]
  - Hyperkeratosis [Unknown]
  - Pustule [Unknown]
  - Illness [Unknown]
  - Fatigue [Unknown]
  - Nausea [Unknown]
  - Dry mouth [Unknown]
  - Hot flush [Unknown]
  - Vomiting [Unknown]

NARRATIVE: CASE EVENT DATE: 20231128
